FAERS Safety Report 6752695-5 (Version None)
Quarter: 2010Q2

REPORT INFORMATION
  Report Type: 
  Country: None (occurrence: None)
  Receive Date: 20100601
  Receipt Date: 20100601
  Transmission Date: 20101027
  Serious: No
  Sender: FDA-Public Use
  Company Number: None

PATIENT
  Sex: Female
  Weight: 59.8748 kg

DRUGS (1)
  1. LUPRON DEPOT [Suspect]
     Indication: ENDOMETRIOSIS
     Dosage: 3.75 MONTHLY IV
     Route: 042
     Dates: start: 20040901, end: 20050201

REACTIONS (17)
  - AMNESIA [None]
  - ARTHRALGIA [None]
  - ASTHENIA [None]
  - CHEST PAIN [None]
  - CONFUSIONAL STATE [None]
  - CONVULSION [None]
  - DIZZINESS [None]
  - HEART RATE DECREASED [None]
  - HEART RATE INCREASED [None]
  - HYPOAESTHESIA [None]
  - HYPOTENSION [None]
  - MUSCLE SPASMS [None]
  - MYALGIA [None]
  - PARAESTHESIA [None]
  - UNEVALUABLE EVENT [None]
  - VITAMIN C DECREASED [None]
  - VITAMIN D DECREASED [None]
